FAERS Safety Report 5328067-7 (Version None)
Quarter: 2007Q2

REPORT INFORMATION
  Report Type: 
  Country: None (occurrence: None)
  Receive Date: 20070514
  Receipt Date: 20070504
  Transmission Date: 20071010
  Serious: Yes (Hospitalization, Other)
  Sender: FDA-Public Use
  Company Number: 2007SP007994

PATIENT
  Age: 49 Year
  Sex: Male

DRUGS (3)
  1. PEG-INTRON [Suspect]
     Indication: HEPATITIS C
     Dosage: SC
     Route: 058
     Dates: start: 20070316
  2. RIBAVIRIN [Suspect]
     Dosage: PO
     Route: 048
     Dates: start: 20070316
  3. PAXIL [Concomitant]

REACTIONS (8)
  - ANAEMIA [None]
  - CHEST DISCOMFORT [None]
  - DECREASED APPETITE [None]
  - DEHYDRATION [None]
  - DEPRESSION [None]
  - DYSPNOEA EXERTIONAL [None]
  - HYPOTHYROIDISM [None]
  - VOMITING [None]
